FAERS Safety Report 21625990 (Version 1)
Quarter: 2022Q4

REPORT INFORMATION
  Report Type: Spontaneous
  Country: NL (occurrence: NL)
  Receive Date: 20221122
  Receipt Date: 20221122
  Transmission Date: 20230113
  Serious: Yes (Death, Other)
  Sender: FDA-Public Use
  Company Number: NL-SUN PHARMACEUTICAL INDUSTRIES LTD-2022R1-364793

PATIENT
  Age: 74 Year
  Sex: Male

DRUGS (3)
  1. PREDNISONE [Suspect]
     Active Substance: PREDNISONE
     Indication: Miller Fisher syndrome
     Dosage: 1 MILLIGRAM/KILOGRAM, DAILY
     Route: 065
  2. INFLIXIMAB [Suspect]
     Active Substance: INFLIXIMAB
     Indication: Miller Fisher syndrome
     Dosage: UNK (5 MG/KG ONCE)
     Route: 065
  3. RITUXIMAB [Suspect]
     Active Substance: RITUXIMAB
     Indication: Miller Fisher syndrome
     Dosage: UNK (1000 MG, EVERY 2 WEEKS)
     Route: 065

REACTIONS (1)
  - Pneumonia [Fatal]
